FAERS Safety Report 19348764 (Version 1)
Quarter: 2021Q2

REPORT INFORMATION
  Report Type: Spontaneous
  Country: US (occurrence: US)
  Receive Date: 20210529
  Receipt Date: 20210529
  Transmission Date: 20210717
  Serious: Yes (Hospitalization, Other)
  Sender: FDA-Public Use
  Company Number: None

PATIENT
  Age: 31 Year
  Sex: Female
  Weight: 67.5 kg

DRUGS (2)
  1. MULTIVITAMIN [Concomitant]
     Active Substance: VITAMINS
  2. BUPROPION XR [Suspect]
     Active Substance: BUPROPION
     Indication: DEPRESSION
     Dates: start: 20201013, end: 20201102

REACTIONS (2)
  - Serum sickness-like reaction [None]
  - Gait disturbance [None]

NARRATIVE: CASE EVENT DATE: 20201031
